FAERS Safety Report 4717644-X (Version None)
Quarter: 2005Q3

REPORT INFORMATION
  Report Type: 
  Country: None (occurrence: None)
  Receive Date: 20050713
  Receipt Date: 20050603
  Transmission Date: 20060218
  Serious: Yes (Other)
  Sender: FDA-Public Use
  Company Number: 406928

PATIENT
  Age: 60 Year
  Sex: Male
  Weight: 96.2 kg

DRUGS (6)
  1. FUZEON [Suspect]
     Indication: HIV INFECTION
     Dosage: SUBCUTANEOUS
     Route: 058
  2. CRIXIVAN [Concomitant]
  3. RESCRIPTOR [Concomitant]
  4. VASOTEC [Concomitant]
  5. GLYBURIDE [Concomitant]
  6. GLUCOPHAGE [Concomitant]

REACTIONS (1)
  - INJECTION SITE CELLULITIS [None]
